FAERS Safety Report 13363984 (Version 1)
Quarter: 2017Q1

REPORT INFORMATION
  Report Type: Spontaneous
  Country: AU (occurrence: AU)
  Receive Date: 20170323
  Receipt Date: 20170323
  Transmission Date: 20170429
  Serious: Yes (Congenital Anomaly, Other)
  Sender: FDA-Public Use
  Company Number: AU-IMPAX LABORATORIES, INC-2017-IPXL-00668

PATIENT
  Sex: Female
  Weight: 2 kg

DRUGS (8)
  1. ALPRAZOLAM ER [Interacting]
     Active Substance: ALPRAZOLAM
     Indication: EXPOSURE DURING BREAST FEEDING
  2. TRANYLCYPROMINE [Interacting]
     Active Substance: TRANYLCYPROMINE
     Indication: FOETAL EXPOSURE DURING PREGNANCY
     Dosage: UNK
     Route: 065
  3. PIMOZIDE. [Interacting]
     Active Substance: PIMOZIDE
     Indication: FOETAL EXPOSURE DURING PREGNANCY
     Dosage: UNK
     Route: 065
  4. ALPRAZOLAM ER [Suspect]
     Active Substance: ALPRAZOLAM
     Indication: FOETAL EXPOSURE DURING PREGNANCY
     Dosage: UNK
     Route: 065
  5. TRANYLCYPROMINE [Interacting]
     Active Substance: TRANYLCYPROMINE
     Indication: EXPOSURE DURING BREAST FEEDING
  6. DIAZEPAM. [Interacting]
     Active Substance: DIAZEPAM
     Indication: FOETAL EXPOSURE DURING PREGNANCY
     Dosage: UNK
     Route: 065
  7. DIAZEPAM. [Interacting]
     Active Substance: DIAZEPAM
     Indication: EXPOSURE DURING BREAST FEEDING
  8. PIMOZIDE. [Interacting]
     Active Substance: PIMOZIDE
     Indication: EXPOSURE DURING BREAST FEEDING

REACTIONS (32)
  - Drug interaction [Unknown]
  - Hypertelorism of orbit [Unknown]
  - Foetal growth restriction [Unknown]
  - Developmental delay [Unknown]
  - Micrognathia [Unknown]
  - Hand deformity [Unknown]
  - Atrial septal defect [Unknown]
  - Congenital nose malformation [Unknown]
  - Phalangeal hypoplasia [Unknown]
  - Arnold-Chiari malformation [Unknown]
  - Abdominal distension [Recovered/Resolved]
  - Skin discolouration [Unknown]
  - Foetal exposure during pregnancy [Unknown]
  - Exposure during breast feeding [Unknown]
  - Cleft palate [Unknown]
  - Scoliosis [Unknown]
  - Craniosynostosis [Unknown]
  - Feeding intolerance [Recovered/Resolved]
  - Anomaly of external ear congenital [Unknown]
  - Ventricular septal defect [Unknown]
  - Patent ductus arteriosus [Unknown]
  - Exophthalmos [Unknown]
  - Nipple disorder [Unknown]
  - Joint hyperextension [Unknown]
  - Optic atrophy [Unknown]
  - Congenital central nervous system anomaly [Unknown]
  - Deafness neurosensory [Unknown]
  - Brain herniation [Unknown]
  - Congenital eye disorder [Unknown]
  - Hydrocephalus [Unknown]
  - High arched palate [Unknown]
  - Eyelid ptosis [Unknown]
